FAERS Safety Report 9432088 (Version 1)
Quarter: 2013Q3

REPORT INFORMATION
  Report Type: Spontaneous
  Country: US (occurrence: US)
  Receive Date: 20130731
  Receipt Date: 20130731
  Transmission Date: 20140515
  Serious: No
  Sender: FDA-Public Use
  Company Number: US-PFIZER INC-2013221507

PATIENT
  Age: 57 Year
  Sex: Male
  Weight: 72.56 kg

DRUGS (3)
  1. LYRICA [Suspect]
     Indication: NEUROPATHY PERIPHERAL
     Dosage: 50 MG, 2X/DAY
     Route: 048
     Dates: start: 2010, end: 2013
  2. LYRICA [Suspect]
     Dosage: 50 MG, 2X/DAY
     Route: 048
     Dates: start: 2013
  3. IMITREX [Concomitant]
     Indication: MIGRAINE
     Dosage: UNK, AS NEEDED
     Route: 045

REACTIONS (4)
  - Off label use [Unknown]
  - Inappropriate schedule of drug administration [Unknown]
  - Sinusitis [Unknown]
  - Gait disturbance [Unknown]
